FAERS Safety Report 4589400-7 (Version None)
Quarter: 2005Q1

REPORT INFORMATION
  Report Type: 
  Country: None (occurrence: None)
  Receive Date: 20050216
  Receipt Date: 20050204
  Transmission Date: 20050727
  Serious: Yes (Other)
  Sender: FDA-Public Use
  Company Number: 004081

PATIENT
  Age: 56 Year
  Sex: Female
  Weight: 61.2 kg

DRUGS (3)
  1. DIAMOX [Suspect]
     Indication: GLAUCOMA
     Dates: start: 19800101
  2. NEPTAZANE (METHAZOLAMIDE) [Suspect]
  3. PILOCARPINE (PILOCPARPINE) [Concomitant]

REACTIONS (7)
  - BLOOD DISORDER [None]
  - DECREASED IMMUNE RESPONSIVENESS [None]
  - DRUG INTERACTION POTENTIATION [None]
  - GLAUCOMA [None]
  - INFLUENZA [None]
  - NIGHT BLINDNESS [None]
  - WHITE BLOOD CELL COUNT DECREASED [None]
